FAERS Safety Report 12970195 (Version 4)
Quarter: 2017Q3

REPORT INFORMATION
  Report Type: Spontaneous
  Country: TN (occurrence: TN)
  Receive Date: 20161123
  Receipt Date: 20170727
  Transmission Date: 20171127
  Serious: Yes (Death, Life-Threatening, Hospitalization, Other)
  Sender: FDA-Public Use
  Company Number: TN-SA-2016SA211743

PATIENT
  Age: 58 Year
  Sex: Female

DRUGS (5)
  1. AMOXICILLIN/CLAVULANIC ACID [Suspect]
     Active Substance: AMOXICILLIN\CLAVULANIC ACID
     Indication: PHARYNGITIS
     Route: 065
     Dates: start: 20070907, end: 20070907
  2. CLOPIDOGREL [Concomitant]
     Active Substance: CLOPIDOGREL BISULFATE
  3. CAPTOPRIL. [Concomitant]
     Active Substance: CAPTOPRIL
  4. EPINEPHRINE. [Suspect]
     Active Substance: EPINEPHRINE
     Indication: ANAPHYLACTIC SHOCK
     Route: 042
     Dates: start: 20070907, end: 20070907
  5. SIMVASTATIN. [Concomitant]
     Active Substance: SIMVASTATIN

REACTIONS (16)
  - Chest pain [Fatal]
  - Cardiogenic shock [Fatal]
  - Face oedema [Fatal]
  - Depressed level of consciousness [Fatal]
  - Anaphylactic shock [Fatal]
  - Hypotension [Fatal]
  - Acute myocardial infarction [Fatal]
  - Kounis syndrome [Fatal]
  - Pruritus [Fatal]
  - Dizziness [Fatal]
  - Flushing [Fatal]
  - Skin warm [Fatal]
  - Troponin I increased [Fatal]
  - Vascular stent thrombosis [Fatal]
  - Urticaria [Fatal]
  - Tachycardia [Fatal]

NARRATIVE: CASE EVENT DATE: 20070907
